FAERS Safety Report 4383794-3 (Version None)
Quarter: 2004Q2

REPORT INFORMATION
  Report Type: 
  Country: None (occurrence: None)
  Receive Date: 20040608
  Receipt Date: 20030929
  Transmission Date: 20050107
  Serious: Yes (Other)
  Sender: FDA-Public Use
  Company Number: 200313525BCC

PATIENT
  Age: 29 Year
  Sex: Female
  Weight: 90.7194 kg

DRUGS (2)
  1. ALEVE [Suspect]
     Indication: PHARYNGOLARYNGEAL PAIN
     Dosage: 440 MG, ONCE, ORAL
     Route: 048
     Dates: start: 20030929
  2. AMOXICILLIN [Suspect]
     Indication: PHARYNGITIS STREPTOCOCCAL
     Dosage: ONCE, ORAL
     Route: 048
     Dates: start: 20030929

REACTIONS (4)
  - ANAPHYLACTIC REACTION [None]
  - DYSPNOEA [None]
  - RASH GENERALISED [None]
  - THROAT TIGHTNESS [None]
